FAERS Safety Report 25611789 (Version 2)
Quarter: 2025Q3

REPORT INFORMATION
  Report Type: Report from Study
  Country: US (occurrence: US)
  Receive Date: 20250728
  Receipt Date: 20250731
  Transmission Date: 20251021
  Serious: No
  Sender: ALEXION PHARMACEUTICALS
  Company Number: US-AstraZeneca-CH-00917153A

PATIENT
  Sex: Female

DRUGS (1)
  1. OSIMERTINIB [Suspect]
     Active Substance: OSIMERTINIB
     Dosage: 80 MILLIGRAM, QD

REACTIONS (6)
  - Aphthous ulcer [Unknown]
  - Diarrhoea [Unknown]
  - Fatigue [Unknown]
  - Wound [Unknown]
  - Nail disorder [Unknown]
  - Pain [Unknown]
